FAERS Safety Report 6261120-2 (Version None)
Quarter: 2009Q3

REPORT INFORMATION
  Report Type: 
  Country: None (occurrence: None)
  Receive Date: 20090709
  Receipt Date: 20081124
  Transmission Date: 20100115
  Serious: No
  Sender: FDA-Public Use
  Company Number: US-KINGPHARMUSA00001-K200801353

PATIENT
  Sex: Female

DRUGS (4)
  1. LEVOXYL [Suspect]
     Indication: HYPOTHYROIDISM
     Dosage: 150 MCG, UNK
     Route: 048
     Dates: start: 20000101, end: 20080101
  2. LEVOXYL [Suspect]
     Dosage: 75 MCG, UNK
     Route: 048
     Dates: start: 20080101, end: 20080101
  3. LEVOXYL [Suspect]
     Dosage: 50 MCG, UNK
     Route: 048
     Dates: start: 20080101
  4. SYNTHROID [Concomitant]
     Dosage: UNK
     Dates: start: 20080101, end: 20080101

REACTIONS (3)
  - HYPERTHYROIDISM [None]
  - MALAISE [None]
  - NERVOUSNESS [None]
